FAERS Safety Report 15204173 (Version 3)
Quarter: 2018Q4

REPORT INFORMATION
  Report Type: Spontaneous
  Country: AU (occurrence: AU)
  Receive Date: 20180726
  Receipt Date: 20181001
  Transmission Date: 20190204
  Serious: Yes (Hospitalization, Other)
  Sender: FDA-Public Use
  Company Number: AU-GLAXOSMITHKLINE-AU2018GSK131008

PATIENT
  Age: 84 Year
  Sex: Female
  Weight: 50 kg

DRUGS (2)
  1. SPIOLTO [Suspect]
     Active Substance: OLODATEROL HYDROCHLORIDE\TIOTROPIUM BROMIDE MONOHYDRATE
     Indication: PRODUCT USED FOR UNKNOWN INDICATION
     Dosage: UNK
  2. TRELEGY ELLIPTA [Suspect]
     Active Substance: FLUTICASONE FUROATE\UMECLIDINIUM BROMIDE\VILANTEROL TRIFENATATE
     Indication: MYOCARDIAL ISCHAEMIA
     Dosage: UNK UNK, 1D
     Route: 055
     Dates: start: 20180705, end: 20180709

REACTIONS (5)
  - Heart rate irregular [Unknown]
  - Labelled drug-drug interaction medication error [Unknown]
  - Arrhythmia [Recovered/Resolved]
  - Heart rate increased [Recovered/Resolved]
  - Feeling abnormal [Unknown]

NARRATIVE: CASE EVENT DATE: 20180709
